FAERS Safety Report 21759481 (Version 1)
Quarter: 2022Q4

REPORT INFORMATION
  Report Type: Spontaneous
  Country: US (occurrence: US)
  Receive Date: 20221221
  Receipt Date: 20221221
  Transmission Date: 20230112
  Serious: No
  Sender: FDA-Public Use
  Company Number: US-BRISTOL-MYERS SQUIBB COMPANY-2022-156116

PATIENT
  Age: 72 Year
  Sex: Male
  Weight: 58.06 kg

DRUGS (1)
  1. POMALYST [Suspect]
     Active Substance: POMALIDOMIDE
     Indication: Plasma cell myeloma
     Dosage: FREQUENCY-1 CAPSULE D 1-21 Q 42 DAYS
     Route: 048
     Dates: start: 20191101

REACTIONS (2)
  - Diarrhoea [Unknown]
  - Nasopharyngitis [Unknown]
